FAERS Safety Report 8395801-1 (Version None)
Quarter: 2012Q2

REPORT INFORMATION
  Report Type: 
  Country: None (occurrence: None)
  Receive Date: 20120530
  Receipt Date: 20120525
  Transmission Date: 20120825
  Serious: Yes (Hospitalization)
  Sender: FDA-Public Use
  Company Number: FR-ROCHE-1072327

PATIENT
  Sex: Female

DRUGS (3)
  1. ATENOLOL [Concomitant]
     Route: 048
  2. ROCEPHIN [Suspect]
     Indication: PYELONEPHRITIS
     Route: 042
     Dates: start: 20110924, end: 20110926
  3. AMILORIDE HYDROCHLORIDE [Concomitant]
     Route: 048

REACTIONS (2)
  - SKIN TEST NEGATIVE [None]
  - DRUG RASH WITH EOSINOPHILIA AND SYSTEMIC SYMPTOMS [None]
